FAERS Safety Report 5273402-1 (Version None)
Quarter: 2007Q1

REPORT INFORMATION
  Report Type: 
  Country: None (occurrence: None)
  Receive Date: 20070320
  Receipt Date: 20070305
  Transmission Date: 20070707
  Serious: Yes (Other)
  Sender: FDA-Public Use
  Company Number: DSA_29518_2007

PATIENT
  Age: 82 Year
  Sex: Male

DRUGS (4)
  1. ENALAPRIL MALEATE [Suspect]
     Indication: HYPERTENSION
     Dosage: 10 MG QD PO
     Route: 048
     Dates: start: 20040901, end: 20070101
  2. ASPIRIN LYSINE [Concomitant]
  3. BORNAPRINE HYDROCHLORIDE [Concomitant]
  4. LANSOPRAZOLE [Concomitant]

REACTIONS (2)
  - HYPERHIDROSIS [None]
  - OLIGURIA [None]
